FAERS Safety Report 5985211-6 (Version None)
Quarter: 2008Q4

REPORT INFORMATION
  Report Type: 
  Country: None (occurrence: None)
  Receive Date: 20081203
  Receipt Date: 20081119
  Transmission Date: 20090506
  Serious: Yes (Hospitalization, Other)
  Sender: FDA-Public Use
  Company Number: KV200800338

PATIENT
  Age: 24 Year
  Sex: Female
  Weight: 181.4 kg

DRUGS (1)
  1. MORPHINE SULFATE [Suspect]
     Indication: BACK PAIN
     Dosage: 15 MG  ORAL
     Route: 048
     Dates: end: 20081105

REACTIONS (6)
  - ASPIRATION [None]
  - HEPATIC FAILURE [None]
  - OVERDOSE [None]
  - PNEUMONIA [None]
  - PRODUCT QUALITY ISSUE [None]
  - RENAL FAILURE [None]
